FAERS Safety Report 4979877-7 (Version None)
Quarter: 2006Q2

REPORT INFORMATION
  Report Type: 
  Country: None (occurrence: None)
  Receive Date: 20060421
  Receipt Date: 20060412
  Transmission Date: 20061013
  Serious: Yes (Hospitalization)
  Sender: FDA-Public Use
  Company Number: US-MERCK-0604USA02256

PATIENT
  Age: 68 Year
  Sex: Female
  Weight: 105 kg

DRUGS (4)
  1. VIOXX [Suspect]
     Indication: PAIN
     Route: 048
     Dates: start: 20010305, end: 20010827
  2. ASPIRIN [Concomitant]
     Route: 065
  3. ADVIL [Concomitant]
     Route: 065
  4. [THERAPY UNSPECIFIED] [Concomitant]
     Route: 065

REACTIONS (11)
  - ARTHRALGIA [None]
  - ATRIAL FIBRILLATION [None]
  - CEREBRAL INFARCTION [None]
  - CEREBROVASCULAR ACCIDENT [None]
  - DILATATION ATRIAL [None]
  - FACIAL PALSY [None]
  - FALL [None]
  - HYPERTENSION [None]
  - OVERDOSE [None]
  - PAIN IN EXTREMITY [None]
  - THERMAL BURN [None]
